FAERS Safety Report 8508719-8 (Version None)
Quarter: 2012Q3

REPORT INFORMATION
  Report Type: 
  Country: None (occurrence: None)
  Receive Date: 20120713
  Receipt Date: 20120704
  Transmission Date: 20120928
  Serious: Yes (Hospitalization)
  Sender: FDA-Public Use
  Company Number: JP-VERTEX PHARMACEUTICALS INC.-AE-2012-009633

PATIENT
  Age: 58 Year
  Sex: Male

DRUGS (13)
  1. REBETOL [Concomitant]
     Route: 048
     Dates: start: 20120501, end: 20120508
  2. REBETOL [Concomitant]
     Route: 048
     Dates: start: 20120416, end: 20120430
  3. ACETAMINOPHEN [Concomitant]
     Route: 048
     Dates: start: 20120326
  4. URSO 250 [Concomitant]
     Route: 048
  5. COSPANON [Concomitant]
     Route: 048
  6. SEROQUEL [Concomitant]
     Route: 048
     Dates: start: 20120401
  7. TELAVIC (TELAPREVIR) [Suspect]
     Route: 048
     Dates: start: 20120416, end: 20120617
  8. PEG-INTRON [Concomitant]
     Indication: HEPATITIS C
     Route: 058
     Dates: start: 20120326
  9. REBETOL [Concomitant]
     Indication: HEPATITIS C
     Route: 048
     Dates: start: 20120326, end: 20120415
  10. REBETOL [Concomitant]
     Route: 048
     Dates: start: 20120509
  11. SEROQUEL [Concomitant]
     Route: 048
  12. PRIMPERAN TAB [Concomitant]
     Route: 048
  13. TELAVIC (TELAPREVIR) [Suspect]
     Indication: HEPATITIS C
     Route: 048
     Dates: start: 20120326, end: 20120415

REACTIONS (1)
  - PANCREATITIS ACUTE [None]
